FAERS Safety Report 15979429 (Version 1)
Quarter: 2019Q1

REPORT INFORMATION
  Report Type: Spontaneous
  Country: US (occurrence: US)
  Receive Date: 20190219
  Receipt Date: 20190219
  Transmission Date: 20190418
  Serious: No
  Sender: FDA-Public Use
  Company Number: US-PFIZER INC-2018163472

PATIENT
  Age: 7 Year
  Sex: Male

DRUGS (2)
  1. GENOTROPIN [Suspect]
     Active Substance: SOMATROPIN
     Dosage: 0.7 MG, ONCE A DAY
     Dates: start: 20180504
  2. GENOTROPIN [Suspect]
     Active Substance: SOMATROPIN
     Indication: BODY HEIGHT BELOW NORMAL
     Dosage: 0.7 MG, DAILY
     Dates: start: 20180331

REACTIONS (9)
  - Platelet count increased [Unknown]
  - Blood cholesterol increased [Unknown]
  - Very low density lipoprotein increased [Unknown]
  - Product dose omission [Unknown]
  - Albumin globulin ratio increased [Unknown]
  - Device breakage [Unknown]
  - Blood triglycerides increased [Unknown]
  - Wrong technique in device usage process [Unknown]
  - Underdose [Unknown]

NARRATIVE: CASE EVENT DATE: 20181012
